FAERS Safety Report 13612766 (Version 1)
Quarter: 2017Q2

REPORT INFORMATION
  Report Type: Spontaneous
  Country: US (occurrence: US)
  Receive Date: 20170605
  Receipt Date: 20170605
  Transmission Date: 20170830
  Serious: No
  Sender: FDA-Public Use
  Company Number: US-ALLERGAN-1710460US

PATIENT
  Age: 35 Year
  Sex: Male

DRUGS (1)
  1. KYBELLA [Suspect]
     Active Substance: DEOXYCHOLIC ACID
     Indication: FAT TISSUE INCREASED
     Dosage: 0.2 PER INJECTION, SINGLE
     Route: 058
     Dates: start: 20170310, end: 20170310

REACTIONS (4)
  - Pallor [Recovered/Resolved]
  - Chloasma [Recovered/Resolved]
  - Injection site pain [Recovered/Resolved]
  - Injection site bruising [Recovered/Resolved]

NARRATIVE: CASE EVENT DATE: 20170310
